FAERS Safety Report 16737754 (Version 2)
Quarter: 2019Q3

REPORT INFORMATION
  Report Type: Spontaneous
  Country: PL (occurrence: PL)
  Receive Date: 20190823
  Receipt Date: 20190904
  Transmission Date: 20191005
  Serious: Yes (Hospitalization)
  Sender: FDA-Public Use
  Company Number: PL-BAUSCH-BL-2019-023827

PATIENT
  Age: 56 Year
  Sex: Male

DRUGS (3)
  1. VALSARTAN/HYDROCHLOROTHIAZIDE [Suspect]
     Active Substance: HYDROCHLOROTHIAZIDE\VALSARTAN
     Indication: SUICIDE ATTEMPT
     Dosage: LARGE AMOUNT, MOST LIKELY IN A SUICIDAL ATTEMPT
     Route: 065
     Dates: start: 20141215
  2. METFORMIN [Suspect]
     Active Substance: METFORMIN HYDROCHLORIDE
     Indication: SUICIDE ATTEMPT
     Dosage: LARGE AMOUNT, MOST LIKELY IN A SUICIDAL ATTEMPT
     Route: 065
     Dates: start: 20141215
  3. TOLPERISONE [Suspect]
     Active Substance: TOLPERISONE
     Indication: SUICIDE ATTEMPT
     Dosage: LARGE AMOUNT, MOST LIKELY IN A SUICIDAL ATTEMPT
     Route: 065
     Dates: start: 20141215

REACTIONS (3)
  - Toxicity to various agents [Recovered/Resolved]
  - Suicide attempt [Recovered/Resolved]
  - Lactic acidosis [Recovered/Resolved]

NARRATIVE: CASE EVENT DATE: 20141215
